FAERS Safety Report 16155672 (Version 1)
Quarter: 2019Q2

REPORT INFORMATION
  Report Type: Spontaneous
  Country: US (occurrence: US)
  Receive Date: 20190404
  Receipt Date: 20190404
  Transmission Date: 20190711
  Serious: Yes (Other)
  Sender: FDA-Public Use
  Company Number: US-CIPLA LTD.-2018US19809

PATIENT

DRUGS (3)
  1. SERTRALINE [Suspect]
     Active Substance: SERTRALINE HYDROCHLORIDE
     Indication: ANXIETY
     Dosage: 100 MG, UNK
     Route: 048
  2. AMITRIPTYLINE [Concomitant]
     Active Substance: AMITRIPTYLINE
     Indication: PRODUCT USED FOR UNKNOWN INDICATION
     Dosage: 10 MG, AT NIGHT
     Route: 065
  3. SERTRALINE [Suspect]
     Active Substance: SERTRALINE HYDROCHLORIDE
     Indication: PAIN
     Dosage: 50 MG, QD
     Route: 048
     Dates: start: 20180625

REACTIONS (4)
  - Syncope [Not Recovered/Not Resolved]
  - Headache [Unknown]
  - Fear of falling [Unknown]
  - Product substitution issue [Unknown]

NARRATIVE: CASE EVENT DATE: 201806
